FAERS Safety Report 25753270 (Version 1)
Quarter: 2025Q3

REPORT INFORMATION
  Report Type: Other
  Country: US (occurrence: US)
  Receive Date: 20250903
  Receipt Date: 20250903
  Transmission Date: 20251021
  Serious: Yes (Hospitalization, Other)
  Sender: BIONPHARMA INC.
  Company Number: US-Bion-015225

PATIENT
  Age: 58 Year
  Sex: Female

DRUGS (7)
  1. IBUPROFEN [Suspect]
     Active Substance: IBUPROFEN
     Indication: Abdominal pain lower
  2. LEVOTHYROXINE SODIUM [Concomitant]
     Active Substance: LEVOTHYROXINE SODIUM
     Indication: Hypothyroidism
  3. CISPLATIN [Concomitant]
     Active Substance: CISPLATIN
     Indication: Endometrial cancer stage III
  4. PACLITAXEL [Concomitant]
     Active Substance: PACLITAXEL
     Indication: Endometrial cancer stage III
  5. CARBOPLATIN [Concomitant]
     Active Substance: CARBOPLATIN
     Indication: Endometrial cancer stage III
  6. IBUPROFEN [Suspect]
     Active Substance: IBUPROFEN
     Indication: Abdominal pain lower
  7. PACLITAXEL [Concomitant]
     Active Substance: PACLITAXEL
     Indication: Endometrial cancer stage III

REACTIONS (2)
  - Duodenal ulcer [Unknown]
  - Gastric haemorrhage [Recovered/Resolved]
